FAERS Safety Report 9767886 (Version 1)
Quarter: 2013Q3

REPORT INFORMATION
  Report Type: Spontaneous
  Country: US (occurrence: None)
  Receive Date: 20130827
  Receipt Date: 20130827
  Transmission Date: 20140515
  Serious: Yes (Death)
  Sender: FDA-Public Use
  Company Number: 163-POMAL-13073012

PATIENT
  Age: 72 Year
  Sex: Male

DRUGS (2)
  1. POMALYST [Suspect]
     Indication: PLASMA CELL MYELOMA
     Route: 048
     Dates: start: 20130401
  2. KYPROLIS (CARFILZOMIB) [Concomitant]
     Indication: DISEASE PROGRESSION
     Route: 042

REACTIONS (1)
  - Plasma cell myeloma [None]
